FAERS Safety Report 6568856-4 (Version None)
Quarter: 2010Q1

REPORT INFORMATION
  Report Type: 
  Country: None (occurrence: None)
  Receive Date: 20100128
  Receipt Date: 20100115
  Transmission Date: 20100710
  Serious: Yes (Other)
  Sender: FDA-Public Use
  Company Number: US-1180481

PATIENT
  Sex: Female
  Weight: 45.8133 kg

DRUGS (8)
  1. TRAVATAN [Suspect]
     Indication: GLAUCOMA
     Dosage: (OPHTHALMIC)
     Route: 047
     Dates: start: 20090101, end: 20090101
  2. AZOPT [Suspect]
     Indication: GLAUCOMA
     Dosage: (OPHTHALMIC)
     Route: 047
     Dates: start: 20090101
  3. XALATAN [Suspect]
     Dosage: (1 GTT OU OPHTHALMIC)
     Route: 047
     Dates: start: 20070101, end: 20090101
  4. NEURONTIN [Concomitant]
  5. SYNTHROID [Concomitant]
  6. ALBUTEROL [Concomitant]
  7. ACETYLSALICYLIC ACID [Concomitant]
  8. PRAVACHOL [Concomitant]

REACTIONS (9)
  - DEHYDRATION [None]
  - DIARRHOEA [None]
  - DRUG HYPERSENSITIVITY [None]
  - ECONOMIC PROBLEM [None]
  - HYPOTENSION [None]
  - NAUSEA [None]
  - OCULAR HYPERAEMIA [None]
  - SINUSITIS [None]
  - URINARY TRACT INFECTION [None]
